FAERS Safety Report 7547594-5 (Version None)
Quarter: 2011Q2

REPORT INFORMATION
  Report Type: 
  Country: None (occurrence: None)
  Receive Date: 20110614
  Receipt Date: 20110602
  Transmission Date: 20111010
  Serious: Yes (Other)
  Sender: FDA-Public Use
  Company Number: US-BAYER-2011-048323

PATIENT
  Age: 76 Year
  Sex: Female

DRUGS (4)
  1. CIPROFLOXACIN HCL [Suspect]
     Indication: ANTIBIOTIC PROPHYLAXIS
     Route: 048
  2. VICOPROFEN [Concomitant]
  3. XANAX [Concomitant]
  4. LEXAPRO [Concomitant]

REACTIONS (2)
  - TENDON PAIN [None]
  - TENDON RUPTURE [None]
